FAERS Safety Report 9201704 (Version 1)
Quarter: 2013Q2

REPORT INFORMATION
  Report Type: Report from Study
  Country: JP (occurrence: JP)
  Receive Date: 20130401
  Receipt Date: 20130409
  Transmission Date: 20140414
  Serious: Yes (Death)
  Sender: FDA-Public Use
  Company Number: JP-PFIZER INC-2013100607

PATIENT
  Age: 89 Year
  Sex: Female

DRUGS (4)
  1. FOSPHENYTOIN SODIUM [Suspect]
     Indication: STATUS EPILEPTICUS
     Dosage: 22.5 MG/KG (150 MG/MIN IN 0.9% PHYSIOLOGICAL SALINE IN 1:8)
     Dates: start: 20120811, end: 20120811
  2. NORADRENALINE [Concomitant]
     Indication: CARDIAC FAILURE
     Dosage: 3 MG, UNK
     Dates: start: 20120813
  3. HANP [Concomitant]
     Indication: CARDIAC FAILURE
     Dosage: 2,000 MICROGRAM
     Dates: start: 20120813
  4. LACTEC [Concomitant]
     Indication: FLUID RETENTION
     Dosage: 500 ML, UNK
     Dates: start: 20120813

REACTIONS (1)
  - Death [Fatal]
